FAERS Safety Report 12254615 (Version 1)
Quarter: 2016Q2

REPORT INFORMATION
  Report Type: Spontaneous
  Country: FR (occurrence: FR)
  Receive Date: 20160411
  Receipt Date: 20160411
  Transmission Date: 20160815
  Serious: Yes (Hospitalization)
  Sender: FDA-Public Use
  Company Number: FR-TEVA-648736ISR

PATIENT
  Age: 42 Year
  Sex: Male

DRUGS (1)
  1. CISPLATINE TEVA [Suspect]
     Active Substance: CISPLATIN
     Indication: SQUAMOUS CELL CARCINOMA
     Dosage: SECOND COURSE OF CHEMOTHERAPY
     Route: 042
     Dates: start: 20151215, end: 20151215

REACTIONS (4)
  - Rash maculo-papular [Recovered/Resolved]
  - Pyrexia [Recovered/Resolved]
  - Oedema [Recovered/Resolved]
  - Erythrosis [Recovered/Resolved]

NARRATIVE: CASE EVENT DATE: 20151215
